FAERS Safety Report 8532725-0 (Version None)
Quarter: 2012Q3

REPORT INFORMATION
  Report Type: 
  Country: None (occurrence: None)
  Receive Date: 20120724
  Receipt Date: 20120716
  Transmission Date: 20120928
  Serious: Yes (Other)
  Sender: FDA-Public Use
  Company Number: PHHY2009CA27731

PATIENT
  Sex: Female

DRUGS (4)
  1. AVALIDE [Concomitant]
     Dosage: 300 MG, QD
     Dates: start: 20030101
  2. AVAPRO [Concomitant]
     Dosage: 300 MG, UNK
  3. SANDOSTATIN [Suspect]
     Indication: HEADACHE
     Dosage: 3 DF, (3 TIMES PER NIGHT)
     Route: 058
  4. SANDOSTATIN LAR [Suspect]
     Indication: ACROMEGALY
     Dosage: 40 MG EVERY 3 WEEKS
     Route: 030
     Dates: start: 20040715

REACTIONS (13)
  - NECROSIS [None]
  - LOSS OF CONSCIOUSNESS [None]
  - ACNE [None]
  - ABDOMINAL PAIN [None]
  - DIZZINESS [None]
  - ASTHENIA [None]
  - ABDOMINAL PAIN UPPER [None]
  - BLOOD PRESSURE SYSTOLIC INCREASED [None]
  - BLOOD GROWTH HORMONE INCREASED [None]
  - ARTHRALGIA [None]
  - INJECTION SITE CALCIFICATION [None]
  - FATIGUE [None]
  - MASS [None]
